FAERS Safety Report 21931490 (Version 6)
Quarter: 2023Q1

REPORT INFORMATION
  Report Type: Spontaneous
  Country: US (occurrence: US)
  Receive Date: 20230131
  Receipt Date: 20230323
  Transmission Date: 20230417
  Serious: No
  Sender: FDA-Public Use
  Company Number: US-PFIZER INC-PV202200067358

PATIENT
  Age: 93 Year
  Sex: Female

DRUGS (8)
  1. RETACRIT [Suspect]
     Active Substance: EPOETIN ALFA-EPBX
     Indication: Anaemia
     Dosage: UNK, WEEKLY (20,000, SHOT EVERY WEEK)
     Dates: end: 20221229
  2. RETACRIT [Suspect]
     Active Substance: EPOETIN ALFA-EPBX
     Indication: Renal impairment
     Dosage: 20000 IU (EVERY TWO WEEKS)
     Route: 058
  3. RETACRIT [Suspect]
     Active Substance: EPOETIN ALFA-EPBX
     Indication: Blood disorder
     Dosage: 20000 IU, WEEKLY (10,000 UNIT VIALS EIGHT PER MONTH)
     Route: 058
  4. RETACRIT [Suspect]
     Active Substance: EPOETIN ALFA-EPBX
     Dosage: 10000 IU
  5. RETACRIT [Suspect]
     Active Substance: EPOETIN ALFA-EPBX
     Dosage: 20000 IU, EVERY TWO WEEKS
  6. HYDRALAZINE [Concomitant]
     Active Substance: HYDRALAZINE HYDROCHLORIDE
     Indication: Blood pressure abnormal
     Dosage: 10 MG, 3X/DAY
  7. ISOSORBIDE [Concomitant]
     Active Substance: ISOSORBIDE
     Indication: Blood pressure abnormal
     Dosage: 10 MG, 2X/DAY
  8. SODIUM BICARBONATE [Concomitant]
     Active Substance: SODIUM BICARBONATE
     Indication: Renal disorder
     Dosage: 650 MG, 3X/DAY

REACTIONS (9)
  - Pain of skin [Not Recovered/Not Resolved]
  - Bone pain [Not Recovered/Not Resolved]
  - Fluid retention [Not Recovered/Not Resolved]
  - Peripheral swelling [Not Recovered/Not Resolved]
  - Dyspnoea [Unknown]
  - Platelet disorder [Unknown]
  - Full blood count abnormal [Unknown]
  - Fatigue [Unknown]
  - Asthenia [Unknown]
